FAERS Safety Report 12561937 (Version 1)
Quarter: 2016Q3

REPORT INFORMATION
  Report Type: Report from Study
  Country: US (occurrence: US)
  Receive Date: 20160715
  Receipt Date: 20160715
  Transmission Date: 20161109
  Serious: Yes (Other)
  Sender: FDA-Public Use
  Company Number: US-SA-2016SA010804

PATIENT
  Age: 79 Year
  Sex: Male

DRUGS (15)
  1. ALLOPURINOL. [Concomitant]
     Active Substance: ALLOPURINOL
     Indication: GOUT
  2. LIVALO [Concomitant]
     Active Substance: PITAVASTATIN CALCIUM
     Indication: LOW DENSITY LIPOPROTEIN INCREASED
  3. PRALUENT [Suspect]
     Active Substance: ALIROCUMAB
     Indication: TYPE V HYPERLIPIDAEMIA
     Route: 058
     Dates: start: 20151217, end: 20151217
  4. ALLOPURINOL. [Concomitant]
     Active Substance: ALLOPURINOL
     Indication: BLOOD URIC ACID INCREASED
  5. VITAMIN B [Concomitant]
     Active Substance: VITAMIN B
  6. ALIROCUMAB PREFILLED PEN [Concomitant]
     Active Substance: ALIROCUMAB
     Indication: TYPE V HYPERLIPIDAEMIA
     Dates: start: 20151217, end: 20151217
  7. PRALUENT [Suspect]
     Active Substance: ALIROCUMAB
     Indication: HYPERLIPIDAEMIA
     Route: 058
     Dates: start: 20151217, end: 20151217
  8. CALCIUM CITRATE [Concomitant]
     Active Substance: CALCIUM CITRATE
     Indication: OSTEOPENIA
  9. ALIROCUMAB PREFILLED PEN [Concomitant]
     Active Substance: ALIROCUMAB
     Indication: HYPERLIPIDAEMIA
     Dates: start: 20151217, end: 20151217
  10. ALIROCUMAB PREFILLED PEN [Concomitant]
     Active Substance: ALIROCUMAB
     Indication: ARTERIOSCLEROSIS CORONARY ARTERY
     Dates: start: 20151217, end: 20151217
  11. LIALDA [Concomitant]
     Active Substance: MESALAMINE
     Indication: COLITIS MICROSCOPIC
  12. PRALUENT [Suspect]
     Active Substance: ALIROCUMAB
     Indication: LOW DENSITY LIPOPROTEIN INCREASED
     Route: 058
     Dates: start: 20151217, end: 20151217
  13. LEVOTHYROXINE. [Concomitant]
     Active Substance: LEVOTHYROXINE
     Indication: HYPOTHYROIDISM
  14. ASA [Concomitant]
     Active Substance: ASPIRIN
  15. RECLAST [Concomitant]
     Active Substance: ZOLEDRONIC ACID

REACTIONS (5)
  - Angioedema [Recovered/Resolved]
  - Lip swelling [Recovered/Resolved]
  - Oral pain [Recovered/Resolved]
  - Paraesthesia oral [Recovered/Resolved]
  - Mouth swelling [Recovered/Resolved]

NARRATIVE: CASE EVENT DATE: 20151218
